FAERS Safety Report 5987865-7 (Version None)
Quarter: 2008Q4

REPORT INFORMATION
  Report Type: 
  Country: None (occurrence: None)
  Receive Date: 20081209
  Receipt Date: 20080128
  Transmission Date: 20090506
  Serious: No
  Sender: FDA-Public Use
  Company Number: US-TYCO HEALTHCARE/MALLINCKRODT-T200700678

PATIENT

DRUGS (8)
  1. ULTRA-TECHNEKOW [Suspect]
     Indication: VENTILATION/PERFUSION SCAN
     Dosage: 40 MCI, SINGLE
     Route: 042
     Dates: start: 20070301, end: 20070301
  2. ULTRA-TECHNEKOW [Suspect]
     Dosage: 5 MCI, SINGLE
     Route: 042
     Dates: start: 20070301, end: 20070301
  3. TECHNESCAN DTPA KIT [Suspect]
     Indication: VENTILATION/PERFUSION SCAN
     Dosage: UNK, SINGLE
     Route: 042
     Dates: start: 20070301, end: 20070301
  4. TECHNESCAN MAA [Suspect]
     Indication: VENTILATION/PERFUSION SCAN
     Dosage: UNK, SINGLE
     Route: 042
     Dates: start: 20070301, end: 20070301
  5. HYDRALAZINE HCL [Suspect]
  6. BETA BLOCKING AGENTS [Concomitant]
  7. ISOSORBIDE [Concomitant]
  8. INSULIN [Concomitant]

REACTIONS (1)
  - RASH [None]
